FAERS Safety Report 6675567-3 (Version None)
Quarter: 2010Q2

REPORT INFORMATION
  Report Type: 
  Country: None (occurrence: None)
  Receive Date: 20100409
  Receipt Date: 20100329
  Transmission Date: 20101027
  Serious: Yes (Hospitalization, Other)
  Sender: FDA-Public Use
  Company Number: PHHY2010US15611

PATIENT
  Sex: Male
  Weight: 64.399 kg

DRUGS (11)
  1. TASIGNA [Suspect]
     Indication: CHRONIC MYELOID LEUKAEMIA
     Dosage: 400 MG, BID
     Dates: start: 20090704, end: 20090728
  2. TASIGNA [Suspect]
     Dosage: 300 MG, BID
  3. AMIODARONE HCL [Suspect]
     Indication: ARRHYTHMIA
     Dosage: UNK
     Dates: start: 20060101, end: 20090701
  4. ANTIARRHYTHMICS, CLASS I AND III [Concomitant]
  5. SYNTHROID [Concomitant]
     Indication: THYROID DISORDER
     Dosage: 50 MG, UNK
     Dates: end: 20090701
  6. PROCRIT [Concomitant]
     Indication: ANAEMIA
     Dosage: UNK
     Dates: end: 20090701
  7. ZANTAC [Concomitant]
     Indication: GASTROINTESTINAL HAEMORRHAGE
     Dosage: 150 MG, BID
     Dates: end: 20090701
  8. IRON [Concomitant]
     Indication: ANAEMIA
  9. LASIX [Concomitant]
     Dosage: 40 MG, 1/2 EACH EVENING
     Route: 048
     Dates: start: 20090422
  10. DIGOXIN [Concomitant]
     Dosage: 0.125 MG, QOD
     Dates: start: 20081208
  11. ASPIRIN [Concomitant]

REACTIONS (5)
  - CARDIAC FAILURE CONGESTIVE [None]
  - DECREASED APPETITE [None]
  - ELECTROCARDIOGRAM QRS COMPLEX PROLONGED [None]
  - ELECTROCARDIOGRAM QT PROLONGED [None]
  - WEIGHT DECREASED [None]
